FAERS Safety Report 9473081 (Version 1)
Quarter: 2013Q3

REPORT INFORMATION
  Report Type: Spontaneous
  Country: US (occurrence: US)
  Receive Date: 20130823
  Receipt Date: 20130823
  Transmission Date: 20140515
  Serious: Yes (Other)
  Sender: FDA-Public Use
  Company Number: US-BRISTOL-MYERS SQUIBB COMPANY-17412867

PATIENT
  Age: 74 Year
  Sex: Male

DRUGS (19)
  1. SPRYCEL (CML) TABS 100 MG [Suspect]
     Dates: start: 20130122
  2. ALPRAZOLAM [Concomitant]
  3. AMIODARONE [Concomitant]
  4. ASPIRIN [Concomitant]
  5. WELLBUTRIN [Concomitant]
  6. COMBIVENT [Concomitant]
  7. FLONASE [Concomitant]
  8. LASIX [Concomitant]
  9. HYDROCODONE [Concomitant]
  10. IRON [Concomitant]
  11. LOSARTAN [Concomitant]
  12. LOVASTATIN [Concomitant]
  13. MAGNESIUM OXIDE [Concomitant]
  14. METOPROLOL [Concomitant]
  15. POTASSIUM CITRATE [Concomitant]
  16. VITAMIN D3 [Concomitant]
  17. COUMADIN [Concomitant]
  18. PRAMIPEXOLE HCL [Concomitant]
  19. AMBIEN [Concomitant]

REACTIONS (1)
  - Pneumonia [Unknown]
